FAERS Safety Report 9270870 (Version 2)
Quarter: 2014Q1

REPORT INFORMATION
  Report Type: Spontaneous
  Country: US (occurrence: US)
  Receive Date: 20130506
  Receipt Date: 20140121
  Transmission Date: 20141002
  Serious: No
  Sender: FDA-Public Use
  Company Number: US-BIOGENIDEC-2013BI030501

PATIENT
  Age: 53 Year
  Sex: Female

DRUGS (1)
  1. AVONEX [Suspect]
     Indication: MULTIPLE SCLEROSIS
     Route: 030
     Dates: start: 20130327

REACTIONS (6)
  - Frustration [Unknown]
  - Skin atrophy [Unknown]
  - Injection site pain [Unknown]
  - Influenza like illness [Not Recovered/Not Resolved]
  - Muscular weakness [Unknown]
  - Anxiety [Unknown]
